FAERS Safety Report 7223600-2 (Version None)
Quarter: 2011Q1

REPORT INFORMATION
  Report Type: 
  Country: None (occurrence: None)
  Receive Date: 20110112
  Receipt Date: 20100908
  Transmission Date: 20110831
  Serious: No
  Sender: FDA-Public Use
  Company Number: US-ALLERGAN-1011579US

PATIENT
  Age: 74 Year
  Sex: Female

DRUGS (4)
  1. REFRESH TEARS [Concomitant]
     Dosage: UNK
     Route: 047
  2. RESTASIS [Suspect]
     Indication: DRY EYE
     Dosage: 1 GTT, BID
     Route: 047
     Dates: start: 20100901, end: 20100906
  3. XALATAN [Concomitant]
     Dosage: UNK
     Route: 047
  4. COMBIGAN[R] [Concomitant]
     Dosage: UNK
     Route: 047

REACTIONS (3)
  - EYE PRURITUS [None]
  - VISION BLURRED [None]
  - EYE IRRITATION [None]
